FAERS Safety Report 4280969-9 (Version None)
Quarter: 2004Q1

REPORT INFORMATION
  Report Type: 
  Country: None (occurrence: None)
  Receive Date: 20040127
  Receipt Date: 20040114
  Transmission Date: 20041129
  Serious: Yes (Hospitalization, Other)
  Sender: FDA-Public Use
  Company Number: HQWYE321014JAN04

PATIENT
  Age: 89 Year
  Sex: Female

DRUGS (9)
  1. BISOPROLOL FUMARATE AND HYDROCHLOROTHIAZIDE [Suspect]
     Indication: ESSENTIAL HYPERTENSION
     Dosage: 5 MG 2X PER 1 DAY ORAL
     Route: 048
     Dates: start: 20020220, end: 20030815
  2. DIGITOXIN TAB [Suspect]
     Indication: CARDIAC FAILURE
     Dosage: 0.07 MG 5X PER 1 WK ORAL
     Route: 048
     Dates: start: 20020220, end: 20030818
  3. PENTAERYTHIRITOL TETRANITRATE TAB [Suspect]
     Indication: MYOCARDIAL ISCHAEMIA
     Dosage: 50 MG 1X PER 1 DAY ORAL
     Route: 048
     Dates: start: 20020220, end: 20030815
  4. CALCIUM WITH VITAMIN D (CALCIUM PHOSPHATE/CALCIUM SODIUM LACTATE/ERGOC [Concomitant]
  5. RAMIPRIL [Concomitant]
  6. EFEROX (LEVOTHYROXINE SODIUM) [Concomitant]
  7. HEPAR SL FORTE (ARTISCHOCKENBLAETTER-TROCKENEXTRACT) [Concomitant]
  8. NOVONORM (REPAGLINIDE) [Concomitant]
  9. REWODINA (DICLOFENAC SODIUM) [Concomitant]

REACTIONS (10)
  - BLOOD PRESSURE INCREASED [None]
  - BRADYCARDIA [None]
  - DRUG INTERACTION [None]
  - FALL [None]
  - INJURY [None]
  - PAIN IN EXTREMITY [None]
  - RESPIRATORY RATE DECREASED [None]
  - SINUS BRADYCARDIA [None]
  - SYNCOPE [None]
  - VENTRICULAR EXTRASYSTOLES [None]
